FAERS Safety Report 15751209 (Version 2)
Quarter: 2018Q4

REPORT INFORMATION
  Report Type: Spontaneous
  Country: DE (occurrence: DE)
  Receive Date: 20181221
  Receipt Date: 20181221
  Transmission Date: 20190205
  Serious: Yes (Other)
  Sender: FDA-Public Use
  Company Number: DE-MALLINCKRODT-T201805520

PATIENT
  Age: 42 Year
  Sex: Female
  Weight: 41 kg

DRUGS (2)
  1. UVADEX [Suspect]
     Active Substance: METHOXSALEN
     Indication: LUNG TRANSPLANT REJECTION
     Dosage: UNK
     Route: 057
     Dates: start: 201811
  2. HEPARIN [Concomitant]
     Active Substance: HEPARIN SODIUM
     Indication: ANTICOAGULANT THERAPY
     Dosage: 15000 IU, (IU RATIO USED WAS 10:1)
     Route: 065

REACTIONS (3)
  - Deep vein thrombosis [Unknown]
  - Product use in unapproved indication [Unknown]
  - Pulmonary embolism [Unknown]

NARRATIVE: CASE EVENT DATE: 2018
